FAERS Safety Report 20091140 (Version 1)
Quarter: 2021Q4

REPORT INFORMATION
  Report Type: Spontaneous
  Country: US (occurrence: None)
  Receive Date: 20211118
  Receipt Date: 20211118
  Transmission Date: 20220303
  Serious: No
  Sender: FDA-Public Use
  Company Number: None

PATIENT

DRUGS (3)
  1. ACETAMINOPHEN [Suspect]
     Active Substance: ACETAMINOPHEN
  2. LANSOPRAZOLE [Suspect]
     Active Substance: LANSOPRAZOLE
  3. SUCRALFATE [Suspect]
     Active Substance: SUCRALFATE

REACTIONS (1)
  - Incorrect route of product administration [None]
